FAERS Safety Report 11782328 (Version 2)
Quarter: 2015Q4

REPORT INFORMATION
  Report Type: Spontaneous
  Country: IL (occurrence: IL)
  Receive Date: 20151127
  Receipt Date: 20151215
  Transmission Date: 20160305
  Serious: Yes (Death, Hospitalization)
  Sender: FDA-Public Use
  Company Number: IL-ACTELION-A-CH2015-127684

PATIENT
  Age: 81 Year
  Sex: Female

DRUGS (12)
  1. OPSUMIT [Suspect]
     Active Substance: MACITENTAN
     Indication: PULMONARY ARTERIAL HYPERTENSION
     Dosage: 10 MG, UNK
     Route: 048
     Dates: end: 20151110
  2. LAMODEX [Suspect]
     Active Substance: LAMOTRIGINE
     Indication: PRODUCT USED FOR UNKNOWN INDICATION
     Route: 065
  3. VENTAVIS [Suspect]
     Active Substance: ILOPROST
     Indication: PULMONARY ARTERIAL HYPERTENSION
     Route: 055
  4. FUSID [Concomitant]
     Active Substance: FUROSEMIDE
  5. DILATAM [Concomitant]
     Active Substance: DILTIAZEM HYDROCHLORIDE
  6. VITAMIN D [Concomitant]
     Active Substance: CHOLECALCIFEROL
  7. LOSEC [Concomitant]
     Active Substance: OMEPRAZOLE
  8. CALCICHEW D3 [Concomitant]
     Active Substance: CALCIUM\CHOLECALCIFEROL
  9. DIOVAN [Concomitant]
     Active Substance: VALSARTAN
  10. PREDNISONE. [Concomitant]
     Active Substance: PREDNISONE
  11. ELTROXIN [Concomitant]
     Active Substance: LEVOTHYROXINE
  12. ASPIRIN. [Concomitant]
     Active Substance: ASPIRIN

REACTIONS (4)
  - General physical health deterioration [Recovering/Resolving]
  - Respiratory failure [Not Recovered/Not Resolved]
  - Sepsis [Fatal]
  - Renal impairment [Unknown]
